FAERS Safety Report 7117397-4 (Version None)
Quarter: 2010Q4

REPORT INFORMATION
  Report Type: 
  Country: None (occurrence: None)
  Receive Date: 20101122
  Receipt Date: 20101116
  Transmission Date: 20110411
  Serious: Yes (Death, Hospitalization, Other)
  Sender: FDA-Public Use
  Company Number: PHHY2010US58481

PATIENT
  Sex: Female

DRUGS (1)
  1. EXJADE [Suspect]
     Indication: IRON OVERLOAD
     Dosage: 125 MG, QD
     Route: 048
     Dates: start: 20101026, end: 20101028

REACTIONS (9)
  - ABDOMINAL PAIN [None]
  - DEATH [None]
  - DIARRHOEA [None]
  - FLATULENCE [None]
  - MUSCLE SPASMS [None]
  - NAUSEA [None]
  - PORTAL VEIN THROMBOSIS [None]
  - SURGERY [None]
  - VOMITING [None]
